FAERS Safety Report 22069659 (Version 1)
Quarter: 2023Q1

REPORT INFORMATION
  Report Type: Spontaneous
  Country: CN (occurrence: CN)
  Receive Date: 20230307
  Receipt Date: 20230307
  Transmission Date: 20230418
  Serious: Yes (Other)
  Sender: FDA-Public Use
  Company Number: CN-PFIZER INC-PV202300042336

PATIENT
  Age: 89 Year
  Sex: Male
  Weight: 63 kg

DRUGS (1)
  1. NIRMATRELVIR\RITONAVIR [Suspect]
     Active Substance: NIRMATRELVIR\RITONAVIR
     Indication: COVID-19 treatment
     Dosage: 400 MG, 2X/DAY
     Route: 048
     Dates: start: 20230113, end: 20230117

REACTIONS (2)
  - Hiccups [Recovering/Resolving]
  - Nausea [Recovering/Resolving]

NARRATIVE: CASE EVENT DATE: 20230114
